FAERS Safety Report 7412041-0 (Version None)
Quarter: 2011Q2

REPORT INFORMATION
  Report Type: 
  Country: None (occurrence: None)
  Receive Date: 20110413
  Receipt Date: 20110404
  Transmission Date: 20111010
  Serious: Yes (Life-Threatening, Hospitalization)
  Sender: FDA-Public Use
  Company Number: FR-BRISTOL-MYERS SQUIBB COMPANY-15665136

PATIENT
  Age: 64 Year
  Sex: Male

DRUGS (9)
  1. KERLONE [Concomitant]
  2. LEVOTHYROX [Concomitant]
  3. DIFFU-K [Concomitant]
  4. GLUCOPHAGE [Suspect]
     Indication: TYPE 2 DIABETES MELLITUS
     Dosage: FOR LONG TIME
  5. LANTUS [Concomitant]
  6. KARDEGIC [Concomitant]
  7. LASIX [Concomitant]
  8. DIAMICRON [Concomitant]
  9. ALLOPURINOL [Concomitant]

REACTIONS (2)
  - LACTIC ACIDOSIS [None]
  - RENAL FAILURE ACUTE [None]
